FAERS Safety Report 10459116 (Version 1)
Quarter: 2014Q3

REPORT INFORMATION
  Report Type: Spontaneous
  Country: US (occurrence: US)
  Receive Date: 20140917
  Receipt Date: 20140917
  Transmission Date: 20150326
  Serious: No
  Sender: FDA-Public Use
  Company Number: US-JNJFOC-20140906045

PATIENT
  Sex: Female
  Weight: 65.77 kg

DRUGS (11)
  1. DURAGESIC [Suspect]
     Active Substance: FENTANYL
     Indication: OSTEOPOROSIS
     Route: 062
  2. DURAGESIC [Suspect]
     Active Substance: FENTANYL
     Indication: OSTEOPOROSIS
     Route: 062
  3. CALCIUM [Concomitant]
     Active Substance: CALCIUM
     Route: 065
  4. DURAGESIC [Suspect]
     Active Substance: FENTANYL
     Indication: OSTEOARTHRITIS
     Route: 062
  5. DURAGESIC [Suspect]
     Active Substance: FENTANYL
     Indication: OSTEOARTHRITIS
     Route: 062
  6. DURAGESIC [Suspect]
     Active Substance: FENTANYL
     Indication: OSTEOARTHRITIS
     Route: 062
  7. DURAGESIC [Suspect]
     Active Substance: FENTANYL
     Indication: ARTHROPATHY
     Route: 062
  8. VITAMIN D [Concomitant]
     Active Substance: CHOLECALCIFEROL
     Route: 065
  9. DURAGESIC [Suspect]
     Active Substance: FENTANYL
     Indication: ARTHROPATHY
     Route: 062
  10. DURAGESIC [Suspect]
     Active Substance: FENTANYL
     Indication: ARTHROPATHY
     Route: 062
  11. DURAGESIC [Suspect]
     Active Substance: FENTANYL
     Indication: OSTEOPOROSIS
     Route: 062

REACTIONS (6)
  - Muscular weakness [Not Recovered/Not Resolved]
  - Wrong technique in drug usage process [Unknown]
  - Product adhesion issue [Unknown]
  - Pain [Not Recovered/Not Resolved]
  - Product packaging issue [Unknown]
  - Arthritis [Not Recovered/Not Resolved]

NARRATIVE: CASE EVENT DATE: 2013
